FAERS Safety Report 8917007 (Version 1)
Quarter: 2012Q4

REPORT INFORMATION
  Report Type: Report from Study
  Country: NL (occurrence: NL)
  Receive Date: 20121120
  Receipt Date: 20121120
  Transmission Date: 20130627
  Serious: Yes (Hospitalization, Disabling, Other)
  Sender: FDA-Public Use
  Company Number: NL-AMGEN-NLDCT2012073474

PATIENT
  Age: 49 Year
  Sex: Male
  Weight: 61 kg

DRUGS (3)
  1. ETANERCEPT [Suspect]
     Indication: PSORIASIS
     Dosage: 50 mg, 2 times/wk
     Dates: start: 20071016
  2. ETANERCEPT [Suspect]
     Indication: PSORIATIC ARTHROPATHY
  3. NEOTIGASON [Suspect]
     Indication: PSORIASIS
     Dosage: 20 mg, 1x/day
     Dates: start: 19960808

REACTIONS (1)
  - Cerebral infarction [Recovering/Resolving]
